FAERS Safety Report 17189581 (Version 1)
Quarter: 2019Q4

REPORT INFORMATION
  Report Type: Spontaneous
  Country: CA (occurrence: CA)
  Receive Date: 20191223
  Receipt Date: 20191223
  Transmission Date: 20200122
  Serious: Yes (Other)
  Sender: FDA-Public Use
  Company Number: CA-TEVA-2019-CA-1155015

PATIENT
  Age: 66 Year
  Sex: Female

DRUGS (15)
  1. HUMIRA [Suspect]
     Active Substance: ADALIMUMAB
     Route: 065
  2. NAPROXEN. [Concomitant]
     Active Substance: NAPROXEN
  3. OXYCODONEACETAMINOPHEN [Concomitant]
     Active Substance: ACETAMINOPHEN\OXYCODONE HYDROCHLORIDE
  4. CEPHALEXIN. [Concomitant]
     Active Substance: CEPHALEXIN
  5. PREDNISONE. [Concomitant]
     Active Substance: PREDNISONE
  6. MUPIROCIN. [Concomitant]
     Active Substance: MUPIROCIN
     Route: 061
  7. TOCTINO [Suspect]
     Active Substance: ALITRETINOIN
     Indication: PUSTULAR PSORIASIS
     Route: 065
  8. MISOPROSTOL. [Concomitant]
     Active Substance: MISOPROSTOL
  9. TOCTINO [Suspect]
     Active Substance: ALITRETINOIN
     Route: 065
  10. ACETAMINOPHEN. [Concomitant]
     Active Substance: ACETAMINOPHEN
  11. ACETAMINOPHEN AND CODEINE [Concomitant]
     Active Substance: ACETAMINOPHEN\CODEINE PHOSPHATE
  12. HUMIRA [Suspect]
     Active Substance: ADALIMUMAB
     Indication: PUSTULAR PSORIASIS
     Route: 065
  13. CLOBETASOL [Suspect]
     Active Substance: CLOBETASOL
     Indication: PUSTULAR PSORIASIS
     Route: 061
  14. CLINDAMYCIN. [Concomitant]
     Active Substance: CLINDAMYCIN
  15. PENICILLIN [Concomitant]
     Active Substance: PENICILLIN

REACTIONS (1)
  - Xerophthalmia [Unknown]
